FAERS Safety Report 5148158-3 (Version None)
Quarter: 2006Q4

REPORT INFORMATION
  Report Type: 
  Country: None (occurrence: None)
  Receive Date: 20061106
  Receipt Date: 20061026
  Transmission Date: 20070319
  Serious: Yes (Death, Hospitalization)
  Sender: FDA-Public Use
  Company Number: GXKR2006JP06666

PATIENT
  Age: 75 Year
  Sex: Female
  Weight: 33 kg

DRUGS (9)
  1. RIMACTANE [Suspect]
     Indication: MYCOBACTERIAL INFECTION
     Dosage: 450 MG, ORAL
     Route: 048
     Dates: start: 20060830, end: 20060914
  2. ETHAMBUTOL HCL [Suspect]
     Indication: MYCOBACTERIAL INFECTION
     Dosage: 750 MG, ORAL
     Route: 048
     Dates: start: 20060830, end: 20060914
  3. CLARITHROMYCIN [Concomitant]
  4. MUCODYNE (CARBOCISTEINE) [Concomitant]
  5. GLORIAMIN (AZULENE SODIUM SULFONATE, LEVOGLUTAMIDE) [Concomitant]
  6. PURSENNID (SENNOSIDE A+B, SENNOSIDE A+B CALCIUM) [Concomitant]
  7. KAMAG G (MAGNESIUM OXIDE) [Concomitant]
  8. JUZENTAIHOTO (HERBAL EXTRACT NOS, HERBAL EXTRACTS NOS) [Concomitant]
  9. UNASYN (SULTAMICILLIN TOSILATE) [Concomitant]

REACTIONS (22)
  - ACID FAST BACILLI INFECTION [None]
  - ANGINA UNSTABLE [None]
  - BLOOD GLUCOSE DECREASED [None]
  - BLOOD PRESSURE DECREASED [None]
  - CARDIO-RESPIRATORY ARREST [None]
  - CONDITION AGGRAVATED [None]
  - CONTINUOUS HAEMODIAFILTRATION [None]
  - DISSEMINATED INTRAVASCULAR COAGULATION [None]
  - DYSPNOEA [None]
  - HAEMOLYTIC ANAEMIA [None]
  - HEART RATE INCREASED [None]
  - HEPATITIS FULMINANT [None]
  - INFLAMMATION [None]
  - LOSS OF CONSCIOUSNESS [None]
  - LUNG DISORDER [None]
  - MELAENA [None]
  - MULTI-ORGAN FAILURE [None]
  - MYCOBACTERIUM AVIUM COMPLEX INFECTION [None]
  - RENAL FAILURE ACUTE [None]
  - RESPIRATORY RATE INCREASED [None]
  - VENTRICULAR HYPOKINESIA [None]
  - WHITE BLOOD CELL COUNT INCREASED [None]
